FAERS Safety Report 10066672 (Version 3)
Quarter: 2014Q3

REPORT INFORMATION
  Report Type: Spontaneous
  Country: JP (occurrence: JP)
  Receive Date: 20140408
  Receipt Date: 20140804
  Transmission Date: 20150326
  Serious: Yes (Hospitalization, Disabling)
  Sender: FDA-Public Use
  Company Number: PHHY2014JP041860

PATIENT
  Age: 79 Year
  Sex: Male
  Weight: 72 kg

DRUGS (2)
  1. ZOMETA [Suspect]
     Active Substance: ZOLEDRONIC ACID
     Indication: METASTASES TO BONE
     Dosage: 5 MG, EVERY 4 WEEKS
     Route: 041
     Dates: start: 200712, end: 20130326
  2. ZOMETA [Suspect]
     Active Substance: ZOLEDRONIC ACID
     Dosage: 4 MG, EVERY 4 WEEKS
     Route: 041
     Dates: start: 20130327, end: 20131204

REACTIONS (9)
  - Pseudomonas infection [Unknown]
  - Pain [Unknown]
  - Osteonecrosis of jaw [Recovering/Resolving]
  - Paralysis [Not Recovered/Not Resolved]
  - Pulpitis dental [Unknown]
  - Gingivitis [Unknown]
  - Fistula [Unknown]
  - Mouth ulceration [Unknown]
  - Exposed bone in jaw [Unknown]

NARRATIVE: CASE EVENT DATE: 20131205
